FAERS Safety Report 18811264 (Version 2)
Quarter: 2021Q1

REPORT INFORMATION
  Report Type: Spontaneous
  Country: FR (occurrence: FR)
  Receive Date: 20210129
  Receipt Date: 20210216
  Transmission Date: 20210419
  Serious: Yes (Hospitalization)
  Sender: FDA-Public Use
  Company Number: FR-009507513-2101FRA012675

PATIENT
  Age: 69 Year
  Sex: Female

DRUGS (1)
  1. DIPROSALIC [Suspect]
     Active Substance: BETAMETHASONE DIPROPIONATE
     Indication: WRONG PRODUCT ADMINISTERED
     Dosage: NOT DOCUMENTED
     Route: 047
     Dates: start: 20201212, end: 20201212

REACTIONS (3)
  - Conjunctivitis [Recovered/Resolved]
  - Wrong product administered [Recovered/Resolved]
  - Eye pain [Recovered/Resolved]

NARRATIVE: CASE EVENT DATE: 20201212
